FAERS Safety Report 6711452-6 (Version None)
Quarter: 2010Q2

REPORT INFORMATION
  Report Type: 
  Country: None (occurrence: None)
  Receive Date: 20100504
  Receipt Date: 20100504
  Transmission Date: 20101027
  Serious: Yes (Hospitalization)
  Sender: FDA-Public Use
  Company Number: None

PATIENT
  Age: 62 Year
  Sex: Male
  Weight: 70.6 kg

DRUGS (8)
  1. AVASTIN [Suspect]
     Indication: PROSTATE CANCER
     Dosage: 738KG, EVERY 2 WKS, IV
     Route: 042
     Dates: start: 20100402
  2. AVASTIN [Suspect]
     Indication: PROSTATE CANCER
     Dosage: 738KG, EVERY 2 WKS, IV
     Route: 042
     Dates: start: 20100416
  3. AVASTIN [Suspect]
     Indication: PROSTATE CANCER
     Dosage: 738KG, EVERY 2 WKS, IV
     Route: 042
     Dates: start: 20100430
  4. TEMSIROLIMUS 25MG, WYETH (PFIZER) [Suspect]
     Indication: PROSTATE CANCER
     Dosage: 25MG, ONCE A WEEK, IV
     Route: 042
     Dates: start: 20100326, end: 20100430
  5. DOXAZOSIN MESYLATE [Concomitant]
  6. METOPROLOL [Concomitant]
  7. TRELSTAR [Concomitant]
  8. COMPAZINE [Concomitant]

REACTIONS (2)
  - EPISTAXIS [None]
  - HAEMORRHAGE [None]
